FAERS Safety Report 7904413-2 (Version None)
Quarter: 2011Q4

REPORT INFORMATION
  Report Type: 
  Country: None (occurrence: None)
  Receive Date: 20111109
  Receipt Date: 20111031
  Transmission Date: 20120403
  Serious: Yes (Death, Life-Threatening)
  Sender: FDA-Public Use
  Company Number: US-EISAI INC-E7867-00236-SPO-US

PATIENT
  Age: 54 Year
  Sex: Female
  Weight: 44 kg

DRUGS (1)
  1. GLIADEL [Suspect]
     Indication: GLIOBLASTOMA MULTIFORME
     Route: 018

REACTIONS (1)
  - SARCOMA [None]
